FAERS Safety Report 7968822-8 (Version None)
Quarter: 2011Q4

REPORT INFORMATION
  Report Type: 
  Country: None (occurrence: None)
  Receive Date: 20111122
  Receipt Date: 20110721
  Transmission Date: 20120403
  Serious: Yes (Other)
  Sender: FDA-Public Use
  Company Number: PHHY2011US66275

PATIENT
  Age: 31 Year
  Sex: Female

DRUGS (10)
  1. DOXYCYCLINE (DOXYCYCLINE) 04/14/2009 TO UNK [Concomitant]
  2. VITAMIN D [Concomitant]
  3. RETIN-A [Concomitant]
  4. ZOLPIDEM [Concomitant]
  5. GABAPENTIN (GABAPENTIN) CAPSULE, 100 MG [Concomitant]
  6. OVRAL-28 (ETHINYLESTRADIOL, LEVONORGESTREL) [Concomitant]
  7. ARTIFICIAL TEARS (HYPROMELLOSE) [Concomitant]
  8. FLONASE [Concomitant]
  9. PROVIGIL (MODAFINIL), 100 MG [Concomitant]
  10. GILENYA [Suspect]
     Indication: MULTIPLE SCLEROSIS
     Dosage: 0.5 MG, DAILY, ORAL
     Route: 048
     Dates: start: 20110104

REACTIONS (6)
  - ABDOMINAL PAIN UPPER [None]
  - RASH [None]
  - HERPES ZOSTER [None]
  - PYELONEPHRITIS [None]
  - WHITE BLOOD CELL COUNT DECREASED [None]
  - WEIGHT DECREASED [None]
